FAERS Safety Report 7001017-3 (Version None)
Quarter: 2010Q3

REPORT INFORMATION
  Report Type: 
  Country: None (occurrence: None)
  Receive Date: 20100920
  Receipt Date: 20080321
  Transmission Date: 20110219
  Serious: Yes (Other)
  Sender: FDA-Public Use
  Company Number: US-ASTRAZENECA-2008UW01403

PATIENT
  Age: 17686 Day
  Sex: Female
  Weight: 112.9 kg

DRUGS (10)
  1. SEROQUEL [Suspect]
     Indication: SLEEP DISORDER
     Route: 048
     Dates: start: 20060203
  2. SEROQUEL [Suspect]
     Route: 048
     Dates: start: 20060801, end: 20070901
  3. ABILIFY [Concomitant]
     Route: 048
     Dates: start: 20070101
  4. CLOZARIL [Concomitant]
     Route: 048
     Dates: start: 20070101
  5. THORAZINE [Concomitant]
     Dates: start: 20070101
  6. VALIUM [Concomitant]
     Indication: SLEEP DISORDER
     Route: 048
     Dates: start: 20050316
  7. DYAZIDE [Concomitant]
     Dosage: DOSE: 25/37.5 DAILY
     Route: 048
     Dates: start: 20050316
  8. CATAPRES [Concomitant]
     Route: 048
     Dates: start: 20050316
  9. TAMOXIFEN CITRATE [Concomitant]
     Route: 048
     Dates: start: 20050907
  10. AMBIEN [Concomitant]
     Route: 048
     Dates: start: 20060308

REACTIONS (4)
  - BLOOD CHOLESTEROL INCREASED [None]
  - DIABETES MELLITUS [None]
  - DIABETIC COMA [None]
  - DIABETIC KETOACIDOSIS [None]
